FAERS Safety Report 17531268 (Version 2)
Quarter: 2020Q1

REPORT INFORMATION
  Report Type: Spontaneous
  Country: GB (occurrence: GB)
  Receive Date: 20200312
  Receipt Date: 20200330
  Transmission Date: 20200409
  Serious: Yes (Disabling)
  Sender: FDA-Public Use
  Company Number: GB-TEVA-2020-GB-1197934

PATIENT
  Age: 4 Year
  Sex: Male
  Weight: 23 kg

DRUGS (3)
  1. IBUPROFEN. [Concomitant]
     Active Substance: IBUPROFEN
  2. ETOPOSIDE. [Suspect]
     Active Substance: ETOPOSIDE
     Indication: EPENDYMOMA
     Dosage: FOR FIVE DAYS EVERY THREE WEEKS 0.75 MG
     Route: 037
     Dates: start: 20190930, end: 20200103
  3. PARACETAMOL [Concomitant]
     Active Substance: ACETAMINOPHEN

REACTIONS (4)
  - Extravasation [Recovering/Resolving]
  - Brain oedema [Recovering/Resolving]
  - Noninfective encephalitis [Recovering/Resolving]
  - Irritability [Recovering/Resolving]

NARRATIVE: CASE EVENT DATE: 20191219
